FAERS Safety Report 11025403 (Version 1)
Quarter: 2015Q2

REPORT INFORMATION
  Report Type: Spontaneous
  Country: JP (occurrence: None)
  Receive Date: 20150410
  Receipt Date: 20150410
  Transmission Date: 20150821
  Serious: Yes (Hospitalization)
  Sender: FDA-Public Use
  Company Number: JP-2015VAL000248

PATIENT

DRUGS (1)
  1. PARLODEL [Suspect]
     Active Substance: BROMOCRIPTINE MESYLATE
     Indication: PITUITARY-DEPENDENT CUSHING^S SYNDROME
     Route: 048

REACTIONS (1)
  - Blood corticotrophin increased [None]

NARRATIVE: CASE EVENT DATE: 20150323
